FAERS Safety Report 5354111-7 (Version None)
Quarter: 2007Q2

REPORT INFORMATION
  Report Type: 
  Country: None (occurrence: None)
  Receive Date: 20070521
  Receipt Date: 20070207
  Transmission Date: 20071010
  Serious: No
  Sender: FDA-Public Use
  Company Number: WAES 0702USA01088

PATIENT
  Age: 54 Year
  Sex: Male
  Weight: 113.3993 kg

DRUGS (3)
  1. JANUVIA [Suspect]
     Indication: DIABETES MELLITUS NON-INSULIN-DEPENDENT
     Dosage: 100 MG/DAILY/PO
     Route: 048
     Dates: start: 20070203, end: 20070201
  2. AVANDIA [Concomitant]
  3. AMOXICILLIN TRIHYDRATE [Concomitant]

REACTIONS (4)
  - BACK PAIN [None]
  - MUSCLE SPASMS [None]
  - NEPHROLITHIASIS [None]
  - PAIN IN EXTREMITY [None]
